FAERS Safety Report 12397660 (Version 1)
Quarter: 2016Q2

REPORT INFORMATION
  Report Type: Spontaneous
  Country: US (occurrence: None)
  Receive Date: 20160523
  Receipt Date: 20160523
  Transmission Date: 20160815
  Serious: No
  Sender: FDA-Public Use
  Company Number: None

PATIENT
  Age: 57 Year
  Sex: Female
  Weight: 119.75 kg

DRUGS (16)
  1. PRAVCHOL [Concomitant]
  2. ELIQUIS [Concomitant]
     Active Substance: APIXABAN
  3. XTRA STRENGTH TYLENOL [Concomitant]
  4. OCEAN SALINE NASAL SPRAY [Concomitant]
     Active Substance: SODIUM CHLORIDE
  5. TYLENOL [Concomitant]
     Active Substance: ACETAMINOPHEN
  6. EFFEXOR [Concomitant]
     Active Substance: VENLAFAXINE HYDROCHLORIDE
  7. KLONOPIN [Concomitant]
     Active Substance: CLONAZEPAM
  8. LEVOTHYROXINE. [Concomitant]
     Active Substance: LEVOTHYROXINE
  9. CARDIZEN [Concomitant]
  10. DIGOXIN. [Concomitant]
     Active Substance: DIGOXIN
  11. COUMADIN [Suspect]
     Active Substance: WARFARIN SODIUM
     Indication: CARDIAC DISORDER
     Dosage: MEAL TIME BY MOUTH
     Route: 048
     Dates: start: 20060907, end: 20160228
  12. ALLEGRA [Concomitant]
     Active Substance: FEXOFENADINE HYDROCHLORIDE
  13. ASSMANEX [Concomitant]
  14. LOPRESSOR [Concomitant]
     Active Substance: METOPROLOL TARTRATE
  15. XOPENEX HFA [Concomitant]
     Active Substance: LEVALBUTEROL TARTRATE
  16. COGAC [Concomitant]

REACTIONS (9)
  - Family stress [None]
  - Anxiety [None]
  - Vaginal haemorrhage [None]
  - Food interaction [None]
  - Mental disorder [None]
  - Insomnia [None]
  - Drug intolerance [None]
  - Malaise [None]
  - Urticaria [None]

NARRATIVE: CASE EVENT DATE: 20140706
